FAERS Safety Report 7429207-6 (Version None)
Quarter: 2011Q2

REPORT INFORMATION
  Report Type: 
  Country: None (occurrence: None)
  Receive Date: 20110421
  Receipt Date: 20110414
  Transmission Date: 20111010
  Serious: Yes (Hospitalization)
  Sender: FDA-Public Use
  Company Number: US-SANOFI-AVENTIS-2011SA024062

PATIENT
  Age: 68 Year
  Sex: Male
  Weight: 102.4 kg

DRUGS (3)
  1. DOCETAXEL [Suspect]
     Indication: PROSTATE CANCER
     Dosage: 75 MG/M2 INTRAVENOUSLY (IV) ONCE PER 3 WEEKS FOR 10 CYCLES
     Route: 041
     Dates: start: 20110406, end: 20110406
  2. ELIGARD [Suspect]
     Indication: PROSTATE CANCER
     Route: 058
     Dates: start: 20110406, end: 20110406
  3. CASODEX [Suspect]
     Indication: PROSTATE CANCER
     Route: 048
     Dates: start: 20110406, end: 20110408

REACTIONS (1)
  - CHEST PAIN [None]
